FAERS Safety Report 6970778 (Version 4)
Quarter: 2012Q4

REPORT INFORMATION
  Report Type: 
  Country: JP (occurrence: JP)
  Receive Date: 20090416
  Receipt Date: 20121231
  Transmission Date: 20130627
  Serious: Yes (Hospitalization, Other)
  Sender: FDA-Public Use
  Company Number: PHHO2009JP04722

PATIENT
  Age: 55 Year
  Sex: Male
  Weight: 83 kg

DRUGS (8)
  1. ALISKIREN [Suspect]
     Indication: CARDIOVASCULAR DISORDER
     Dosage: Double blind
     Route: 048
     Dates: start: 20090121, end: 20111227
  2. DIOVAN [Concomitant]
     Indication: HYPERTENSION
     Dosage: 160 mg, UNK
     Route: 048
     Dates: start: 20071121
  3. HUMALOG MIX [Concomitant]
     Indication: TYPE 2 DIABETES MELLITUS
     Dosage: 14 iu, 18 iu,12iu,
     Route: 058
     Dates: start: 20080123
  4. HUMALOG [Concomitant]
     Indication: TYPE 2 DIABETES MELLITUS
     Dosage: 20 iu, 28 iu, 24iu
     Route: 058
     Dates: start: 20040416
  5. LIPITOR [Concomitant]
     Indication: HYPERLIPIDAEMIA
     Dosage: 10 mg, UNK
     Route: 048
     Dates: start: 20041117
  6. METHYCOBAL [Concomitant]
     Indication: DIABETIC RETINOPATHY
     Dosage: 1500 ug, UNK
     Route: 048
     Dates: start: 20061129
  7. HYALEIN [Concomitant]
     Indication: CATARACT
     Dosage: IO
     Dates: start: 20081128
  8. MYDRIN P [Concomitant]
     Indication: FUNDOSCOPY
     Dosage: IO
     Dates: start: 20081217

REACTIONS (7)
  - Macular fibrosis [Not Recovered/Not Resolved]
  - Hyperglycaemia [Recovered/Resolved]
  - Cataract [Recovered/Resolved]
  - Diabetes mellitus [Unknown]
  - Concomitant disease progression [Not Recovered/Not Resolved]
  - Condition aggravated [Unknown]
  - Diabetic retinopathy [Not Recovered/Not Resolved]
